FAERS Safety Report 8023820-3 (Version None)
Quarter: 2012Q1

REPORT INFORMATION
  Report Type: 
  Country: None (occurrence: None)
  Receive Date: 20120105
  Receipt Date: 20120103
  Transmission Date: 20120608
  Serious: Yes (Hospitalization)
  Sender: FDA-Public Use
  Company Number: US-JNJFOC-20120100675

PATIENT
  Sex: Male
  Weight: 120.2 kg

DRUGS (2)
  1. DURAGESIC-100 [Suspect]
     Route: 062
     Dates: start: 20100101
  2. DURAGESIC-100 [Suspect]
     Indication: BACK PAIN
     Route: 062
     Dates: start: 20100101

REACTIONS (5)
  - BONE DISORDER [None]
  - FALL [None]
  - SCIATICA [None]
  - SUICIDAL IDEATION [None]
  - PRODUCT QUALITY ISSUE [None]
